FAERS Safety Report 7819290-8 (Version None)
Quarter: 2011Q4

REPORT INFORMATION
  Report Type: 
  Country: None (occurrence: None)
  Receive Date: 20111018
  Receipt Date: 20110425
  Transmission Date: 20120403
  Serious: No
  Sender: FDA-Public Use
  Company Number: US-ASTRAZENECA-2011SE24256

PATIENT
  Age: 55 Year
  Sex: Male

DRUGS (2)
  1. SYMBICORT [Suspect]
     Dosage: 160/4.5 UG, DAILY
     Route: 055
  2. CRESTOR [Suspect]
     Route: 048

REACTIONS (2)
  - DYSPNOEA [None]
  - LUNG DISORDER [None]
